FAERS Safety Report 4358231-5 (Version None)
Quarter: 2004Q2

REPORT INFORMATION
  Report Type: 
  Country: None (occurrence: None)
  Receive Date: 20040513
  Receipt Date: 20040513
  Transmission Date: 20050107
  Serious: Yes (Life-Threatening)
  Sender: FDA-Public Use
  Company Number: None

PATIENT
  Age: 47 Year
  Sex: Male
  Weight: 104 kg

DRUGS (1)
  1. CEFTRIAXONE [Suspect]
     Indication: PNEUMOCOCCAL BACTERAEMIA
     Dosage: 1000 MG QD INTRAVENOUS
     Route: 042
     Dates: start: 20040204, end: 20040204

REACTIONS (2)
  - ANAPHYLACTIC REACTION [None]
  - CARDIAC ARREST [None]
